FAERS Safety Report 7483328-0 (Version None)
Quarter: 2011Q2

REPORT INFORMATION
  Report Type: 
  Country: None (occurrence: None)
  Receive Date: 20110517
  Receipt Date: 20110503
  Transmission Date: 20111010
  Serious: Yes (Other)
  Sender: FDA-Public Use
  Company Number: US-JNJFOC-20110502114

PATIENT
  Sex: Male

DRUGS (3)
  1. CONCERTA [Suspect]
     Indication: ATTENTION DEFICIT/HYPERACTIVITY DISORDER
     Route: 048
     Dates: start: 20090101, end: 20100101
  2. CONCERTA [Suspect]
     Route: 048
     Dates: start: 20100101, end: 20100101
  3. CONCERTA [Suspect]
     Route: 048
     Dates: start: 20060101, end: 20090101

REACTIONS (5)
  - WOLFF-PARKINSON-WHITE SYNDROME [None]
  - IRRITABILITY [None]
  - CRYING [None]
  - EUPHORIC MOOD [None]
  - EATING DISORDER [None]
